FAERS Safety Report 11211530 (Version 2)
Quarter: 2015Q3

REPORT INFORMATION
  Report Type: Spontaneous
  Country: JP (occurrence: JP)
  Receive Date: 20150623
  Receipt Date: 20150723
  Transmission Date: 20151125
  Serious: Yes (Hospitalization, Other)
  Sender: FDA-Public Use
  Company Number: JP-SUN PHARMACEUTICAL INDUSTRIES LTD-2015RR-99001

PATIENT
  Age: 83 Year
  Sex: Female

DRUGS (2)
  1. BENET [Suspect]
     Active Substance: RISEDRONATE SODIUM
     Indication: SPINAL FRACTURE
  2. BENET [Suspect]
     Active Substance: RISEDRONATE SODIUM
     Indication: OSTEOPOROSIS
     Route: 048

REACTIONS (3)
  - Hiatus hernia [Unknown]
  - Melaena [Recovered/Resolved]
  - Oesophageal ulcer [Recovered/Resolved]
